FAERS Safety Report 22962047 (Version 5)
Quarter: 2023Q4

REPORT INFORMATION
  Report Type: Report from Study
  Country: DE (occurrence: DE)
  Receive Date: 20230920
  Receipt Date: 20231113
  Transmission Date: 20240110
  Serious: Yes (Hospitalization)
  Sender: FDA-Public Use
  Company Number: DE-TEVA-2023-DE-2927794

PATIENT
  Age: 44 Year
  Sex: Male

DRUGS (31)
  1. LENALIDOMIDE [Suspect]
     Active Substance: LENALIDOMIDE
     Indication: Follicular lymphoma
     Dosage: DAILY DOSE(S): D1-21, EVERY 1 DAYS 28 DAY CYCLE
     Route: 048
     Dates: start: 20230814
  2. EPCORITAMAB [Suspect]
     Active Substance: EPCORITAMAB
     Indication: Follicular lymphoma
     Dosage: 0.16 MG PRIMING DOSE; C1, D1, TOTAL; 0.8 MG INTERMEDIATE DOSE; C1, D8, TOTAL; 48 MG FULL DOSE; C1, D
     Route: 058
     Dates: start: 20230814, end: 20230814
  3. EPCORITAMAB [Suspect]
     Active Substance: EPCORITAMAB
     Dosage: 0.16 MG PRIMING DOSE; C1, D1, TOTAL; 0.8 MG INTERMEDIATE DOSE; C1, D8, TOTAL; 48 MG FULL DOSE; C1, D
     Route: 058
     Dates: start: 20230821, end: 20230821
  4. EPCORITAMAB [Suspect]
     Active Substance: EPCORITAMAB
     Dosage: 0.16 MG PRIMING DOSE; C1, D1, TOTAL; 0.8 MG INTERMEDIATE DOSE; C1, D8, TOTAL; 48 MG FULL DOSE; C1, D
     Route: 058
     Dates: start: 20230828, end: 20230828
  5. EPCORITAMAB [Suspect]
     Active Substance: EPCORITAMAB
     Dosage: 0.16 MG PRIMING DOSE; C1, D1, TOTAL; 0.8 MG INTERMEDIATE DOSE; C1, D8, TOTAL; 48 MG FULL DOSE; C1, D
     Route: 058
     Dates: start: 20230913, end: 20230913
  6. RITUXIMAB [Suspect]
     Active Substance: RITUXIMAB
     Indication: Follicular lymphoma
     Dosage: 810 MG C1 DAY 1, 8, 15 AND 22, EVERY 1 WEEKS
     Route: 042
     Dates: start: 20230814, end: 20230828
  7. RITUXIMAB [Suspect]
     Active Substance: RITUXIMAB
     Dosage: 798.85 MG, EVERY 4 WEEKS
     Route: 042
     Dates: start: 20230913
  8. SULFAMETHOXAZOLE\TRIMETHOPRIM [Concomitant]
     Active Substance: SULFAMETHOXAZOLE\TRIMETHOPRIM
     Indication: Infection prophylaxis
     Dosage: 800/160 MG, 3/WEEKS
     Route: 065
     Dates: start: 20230904
  9. ASPIRIN [Concomitant]
     Active Substance: ASPIRIN
     Indication: Thrombosis prophylaxis
     Dosage: 100 MILLIGRAM DAILY;
     Dates: start: 20230815, end: 20230901
  10. Delix [Concomitant]
     Indication: Hypertension
     Dosage: 5 MG/4 DAYS
     Dates: start: 2021
  11. AMLODIPINE BESYLATE [Concomitant]
     Active Substance: AMLODIPINE BESYLATE
     Indication: Hypertension
     Dosage: 5 MILLIGRAM DAILY;
     Route: 065
     Dates: start: 2021
  12. DULOXETINE HYDROCHLORIDE [Concomitant]
     Active Substance: DULOXETINE HYDROCHLORIDE
     Indication: Depression
     Dosage: 90 MILLIGRAM DAILY;
     Route: 065
     Dates: start: 201909
  13. INTRATECT [Concomitant]
     Active Substance: HUMAN IMMUNOGLOBULIN G
     Indication: Immunoglobulins decreased
     Dosage: 15 G EVERY 4 WEEKS
     Route: 065
     Dates: start: 202110
  14. ACETAMINOPHEN [Concomitant]
     Active Substance: ACETAMINOPHEN
     Indication: Chemotherapy side effect prophylaxis
     Dosage: 500 MILLIGRAM DAILY; C1D1, C1D8, C1D15
     Dates: start: 20230814, end: 20230817
  15. ACETAMINOPHEN [Concomitant]
     Active Substance: ACETAMINOPHEN
     Dosage: 500 MILLIGRAM DAILY; C1D1, C1D8, C1D15
     Dates: start: 20230821, end: 20230821
  16. ACETAMINOPHEN [Concomitant]
     Active Substance: ACETAMINOPHEN
     Dosage: 500 MILLIGRAM DAILY; C1D1, C1D8, C1D15
     Dates: start: 20230828, end: 20230828
  17. ALLOPURINOL [Concomitant]
     Active Substance: ALLOPURINOL
     Indication: Chemotherapy side effect prophylaxis
     Dosage: 300 MILLIGRAM DAILY;
     Dates: start: 20230814, end: 20230817
  18. CLEMASTINE FUMARATE [Concomitant]
     Active Substance: CLEMASTINE FUMARATE
     Indication: Chemotherapy side effect prophylaxis
     Dosage: C1D1,C1D8, C1D15,
     Dates: start: 20230814, end: 20230814
  19. CLEMASTINE FUMARATE [Concomitant]
     Active Substance: CLEMASTINE FUMARATE
     Dates: start: 20230821, end: 20230821
  20. CLEMASTINE FUMARATE [Concomitant]
     Active Substance: CLEMASTINE FUMARATE
     Dates: start: 20230828, end: 20230828
  21. ACYCLOVIR [Concomitant]
     Active Substance: ACYCLOVIR
     Indication: Infection prophylaxis
     Dosage: 400 MILLIGRAM DAILY;
     Dates: start: 20230815
  22. Kalinor [Concomitant]
     Indication: Hypokalaemia
     Dates: start: 20230829, end: 20230830
  23. MOVICOL [Concomitant]
     Active Substance: POLYETHYLENE GLYCOL 3350\POTASSIUM CHLORIDE\SODIUM BICARBONATE\SODIUM CHLORIDE
     Indication: Constipation
     Dates: start: 20230829, end: 20230829
  24. PENTACARINAT [Concomitant]
     Active Substance: PENTAMIDINE ISETHIONATE
     Indication: Infection prophylaxis
     Dates: start: 20230830, end: 20230830
  25. HYDROMORPHONE [Concomitant]
     Active Substance: HYDROMORPHONE
     Indication: Pain
     Dosage: 6 MILLIGRAM DAILY;
     Dates: start: 20230110
  26. LACTULOSE [Concomitant]
     Active Substance: LACTULOSE
     Indication: Constipation
     Dosage: AS NECESSARY
     Dates: start: 20230901, end: 20230902
  27. ENOXAPARIN SODIUM [Concomitant]
     Active Substance: ENOXAPARIN SODIUM
     Indication: Thrombosis prophylaxis
     Dosage: 4000 IU, EVERY 1 DAYS; 40 MG, EVERY 1 DAYS
     Dates: start: 20230807, end: 20230808
  28. ENOXAPARIN SODIUM [Concomitant]
     Active Substance: ENOXAPARIN SODIUM
     Dosage: 4000 IU, EVERY 1 DAYS; 40 MG, EVERY 1 DAYS
     Dates: start: 20230901, end: 20230905
  29. LAXANS-RATIOPHARM PICO [Concomitant]
     Indication: Constipation
     Dosage: 7.5 MG MAX. 10 GTT, AS NECESSARY
     Route: 065
     Dates: start: 20230902, end: 20230902
  30. SODIUM CHLORIDE [Concomitant]
     Active Substance: SODIUM CHLORIDE
     Indication: Infusion
     Dosage: AS NECESSARY
     Dates: start: 20230904, end: 20230906
  31. PANTOPRAZOLE SODIUM [Concomitant]
     Active Substance: PANTOPRAZOLE SODIUM
     Indication: Gastritis prophylaxis
     Dosage: EVERY 1 DAYS
     Route: 065

REACTIONS (1)
  - Cytokine release syndrome [Recovered/Resolved]

NARRATIVE: CASE EVENT DATE: 20230903
